FAERS Safety Report 6707680-6 (Version None)
Quarter: 2010Q2

REPORT INFORMATION
  Report Type: 
  Country: None (occurrence: None)
  Receive Date: 20100503
  Receipt Date: 20091013
  Transmission Date: 20101027
  Serious: No
  Sender: FDA-Public Use
  Company Number: US-ASTRAZENECA-2009SE20118

PATIENT
  Age: 43 Year
  Weight: 89.8 kg

DRUGS (1)
  1. NEXIUM [Suspect]
     Route: 048

REACTIONS (4)
  - BREATH ODOUR [None]
  - DYSGEUSIA [None]
  - ERUCTATION [None]
  - FLATULENCE [None]
